FAERS Safety Report 17008499 (Version 1)
Quarter: 2019Q4

REPORT INFORMATION
  Report Type: Spontaneous
  Country: GB (occurrence: GB)
  Receive Date: 20191108
  Receipt Date: 20191108
  Transmission Date: 20200122
  Serious: Yes (Hospitalization, Other)
  Sender: FDA-Public Use
  Company Number: GB-ACCORD-160186

PATIENT
  Age: 70 Year
  Sex: Female
  Weight: 24.3 kg

DRUGS (17)
  1. TIOTROPIUM/TIOTROPIUM BROMIDE [Concomitant]
  2. RANITIDINE. [Concomitant]
     Active Substance: RANITIDINE
  3. CODEINE [Concomitant]
     Active Substance: CODEINE
  4. DOXYCYCLINE. [Concomitant]
     Active Substance: DOXYCYCLINE
  5. SALBUTAMOL [Concomitant]
     Active Substance: ALBUTEROL
  6. HYDROXOCOBALAMIN [Concomitant]
     Active Substance: HYDROXOCOBALAMIN
  7. PREDNISOLONE. [Concomitant]
     Active Substance: PREDNISOLONE
  8. TRIMBOW [Concomitant]
     Active Substance: BECLOMETHASONE DIPROPIONATE\FORMOTEROL FUMARATE\GLYCOPYRROLATE
     Route: 055
  9. QUININE [Concomitant]
     Active Substance: QUININE
  10. IBUPROFEN. [Concomitant]
     Active Substance: IBUPROFEN
  11. LACTULOSE. [Concomitant]
     Active Substance: LACTULOSE
  12. PARACETAMOL [Concomitant]
     Active Substance: ACETAMINOPHEN
  13. DOCUSATE/DOCUSATE CALCIUM/DOCUSATE POTASSIUM/DOCUSATE SODIUM [Concomitant]
  14. SERTRALINE [Suspect]
     Active Substance: SERTRALINE HYDROCHLORIDE
     Indication: DEPRESSION
     Route: 048
     Dates: start: 20180205, end: 20180208
  15. ALENDRONATE SODIUM/ALENDRONIC ACID [Concomitant]
  16. NICOTINE. [Concomitant]
     Active Substance: NICOTINE
  17. OMEPRAZOLE. [Concomitant]
     Active Substance: OMEPRAZOLE

REACTIONS (2)
  - Pneumonia [Unknown]
  - Hyponatraemia [Unknown]

NARRATIVE: CASE EVENT DATE: 20180208
